FAERS Safety Report 8129423-4 (Version None)
Quarter: 2012Q1

REPORT INFORMATION
  Report Type: 
  Country: None (occurrence: None)
  Receive Date: 20120210
  Receipt Date: 20120202
  Transmission Date: 20120608
  Serious: Yes (Life-Threatening, Disabling, Other)
  Sender: FDA-Public Use
  Company Number: US-PURDUE-USA-2012-0081824

PATIENT
  Sex: Female

DRUGS (4)
  1. DILAUDID [Suspect]
     Indication: PAIN
     Dosage: 1 MG, SEE TEXT
     Dates: start: 20061208
  2. DILAUDID [Suspect]
     Dosage: UNK
  3. MORPHINE SULFATE [Suspect]
     Indication: PAIN
     Dosage: 6 MG, SEE TEXT
     Dates: start: 20061208
  4. MORPHINE SULFATE [Suspect]
     Dosage: 4 MG, SEE TEXT
     Dates: start: 20061208

REACTIONS (6)
  - CYANOSIS [None]
  - RESPIRATORY ARREST [None]
  - CARDIAC ARREST [None]
  - COMA [None]
  - UNRESPONSIVE TO STIMULI [None]
  - NERVOUS SYSTEM DISORDER [None]
